FAERS Safety Report 4470935-2 (Version None)
Quarter: 2004Q4

REPORT INFORMATION
  Report Type: 
  Country: None (occurrence: None)
  Receive Date: 20041011
  Receipt Date: 20041004
  Transmission Date: 20050328
  Serious: Yes (Hospitalization)
  Sender: FDA-Public Use
  Company Number: US-ABBOTT-04P-163-0276011-00

PATIENT
  Age: 38 Year
  Sex: Female

DRUGS (1)
  1. OMNICEF [Suspect]
     Indication: LOCALISED INFECTION
     Route: 048
     Dates: start: 20040924, end: 20040924

REACTIONS (1)
  - GRAND MAL CONVULSION [None]
